FAERS Safety Report 11005979 (Version 3)
Quarter: 2015Q2

REPORT INFORMATION
  Report Type: Spontaneous
  Country: US (occurrence: US)
  Receive Date: 20150409
  Receipt Date: 20150501
  Transmission Date: 20150821
  Serious: Yes (Hospitalization)
  Sender: FDA-Public Use
  Company Number: US-MALLINCKRODT-T201501836

PATIENT
  Age: 32 Year
  Sex: Female

DRUGS (1)
  1. GABLOFEN [Suspect]
     Active Substance: BACLOFEN
     Indication: MUSCLE SPASTICITY
     Dosage: 88 MCG / DAY
     Route: 037

REACTIONS (5)
  - Pulmonary embolism [Unknown]
  - Implant site cellulitis [Unknown]
  - Incision site swelling [Unknown]
  - Staphylococcal infection [Unknown]
  - Headache [Unknown]

NARRATIVE: CASE EVENT DATE: 201503
